FAERS Safety Report 13540240 (Version 3)
Quarter: 2017Q3

REPORT INFORMATION
  Report Type: Spontaneous
  Country: US (occurrence: US)
  Receive Date: 20170512
  Receipt Date: 20170712
  Transmission Date: 20171127
  Serious: Yes (Hospitalization, Other)
  Sender: FDA-Public Use
  Company Number: US-BAYER-2017-088082

PATIENT
  Age: 36 Year
  Sex: Female

DRUGS (1)
  1. MIRENA [Suspect]
     Active Substance: LEVONORGESTREL
     Indication: CONTRACEPTION
     Dosage: 20 MCG/24HR, CONT
     Route: 015
     Dates: start: 20120206, end: 20150606

REACTIONS (7)
  - Gallbladder enlargement [None]
  - Drug ineffective [None]
  - Uterine perforation [None]
  - Pyrexia [None]
  - Afterbirth pain [None]
  - Pregnancy with contraceptive device [None]
  - Disturbance in social behaviour [None]

NARRATIVE: CASE EVENT DATE: 201411
